FAERS Safety Report 9323664 (Version 2)
Quarter: 2013Q3

REPORT INFORMATION
  Report Type: Spontaneous
  Country: JP (occurrence: JP)
  Receive Date: 20130603
  Receipt Date: 20130715
  Transmission Date: 20140515
  Serious: Yes (Other)
  Sender: FDA-Public Use
  Company Number: PHHY2013JP055008

PATIENT
  Age: 77 Year
  Sex: Male

DRUGS (5)
  1. TEGRETOL [Suspect]
     Indication: TRIGEMINAL NEURALGIA
     Dosage: UNK UKN, UNK
     Route: 048
  2. REZALTAS [Concomitant]
     Dosage: UNK UKN, UNK
     Route: 048
  3. LYRICA [Concomitant]
     Dosage: UNK UKN, UNK
     Route: 048
  4. LYRICA [Concomitant]
     Dosage: UNK (DOSE DECREASED)
     Route: 048
  5. TAKEPRON [Concomitant]
     Dosage: UNK UKN, UNK
     Route: 048

REACTIONS (2)
  - Loss of consciousness [Recovering/Resolving]
  - Dizziness [Recovering/Resolving]
